FAERS Safety Report 5505109-7 (Version None)
Quarter: 2007Q4

REPORT INFORMATION
  Report Type: 
  Country: None (occurrence: None)
  Receive Date: 20071102
  Receipt Date: 20071031
  Transmission Date: 20080405
  Serious: Yes (Hospitalization)
  Sender: FDA-Public Use
  Company Number: FR-AVENTIS-200713450FR

PATIENT
  Age: 53 Year
  Sex: Male

DRUGS (9)
  1. OFLOCET                            /00731801/ [Suspect]
     Route: 048
     Dates: start: 20070120, end: 20070124
  2. FLAGYL [Suspect]
     Route: 042
     Dates: start: 20070116, end: 20070124
  3. VITAMIN B1 AND B6 [Concomitant]
     Route: 048
  4. DUPHALAC                           /00163401/ [Concomitant]
     Route: 048
     Dates: start: 20070120, end: 20070124
  5. SERETIDE [Concomitant]
     Route: 048
  6. TORENTAL [Concomitant]
     Route: 048
     Dates: start: 20070120, end: 20070130
  7. DIFFU K [Concomitant]
     Route: 048
     Dates: start: 20070123, end: 20070222
  8. SERESTA [Concomitant]
     Route: 048
     Dates: start: 20070124
  9. VITAMINE K1 [Concomitant]
     Route: 042
     Dates: start: 20070120, end: 20070130

REACTIONS (3)
  - CONFUSIONAL STATE [None]
  - CONVULSION [None]
  - DYSKINESIA [None]
